FAERS Safety Report 5221717-5 (Version None)
Quarter: 2007Q1

REPORT INFORMATION
  Report Type: 
  Country: None (occurrence: None)
  Receive Date: 20070129
  Receipt Date: 20070117
  Transmission Date: 20070707
  Serious: Yes (Death, Hospitalization)
  Sender: FDA-Public Use
  Company Number: PHBS2007ES01212

PATIENT
  Age: 7 Year
  Sex: Female

DRUGS (4)
  1. CYCLOSPORINE [Suspect]
     Indication: BONE MARROW TRANSPLANT
     Route: 065
  2. IRRADIATION [Concomitant]
     Indication: BONE MARROW TRANSPLANT
     Route: 065
  3. METHOTREXATE [Concomitant]
     Indication: BONE MARROW TRANSPLANT
     Route: 065
  4. MYCOPHENOLATE MOFETIL [Concomitant]
     Indication: BONE MARROW TRANSPLANT
     Route: 065

REACTIONS (7)
  - COMPUTERISED TOMOGRAM ABNORMAL [None]
  - EYE MOVEMENT DISORDER [None]
  - GRAFT VERSUS HOST DISEASE [None]
  - HYPERTENSION [None]
  - LEUKOENCEPHALOPATHY [None]
  - NYSTAGMUS [None]
  - PARTIAL SEIZURES [None]
